FAERS Safety Report 24924260 (Version 2)
Quarter: 2025Q1

REPORT INFORMATION
  Report Type: Report from Study
  Country: CO (occurrence: CO)
  Receive Date: 20250204
  Receipt Date: 20250319
  Transmission Date: 20250409
  Serious: Yes (Other)
  Sender: UCB
  Company Number: CO-UCBSA-2025006416

PATIENT
  Age: 59 Year
  Sex: Male

DRUGS (4)
  1. BRIVARACETAM [Suspect]
     Active Substance: BRIVARACETAM
     Indication: Epilepsy
     Dosage: 100 MILLIGRAM, 2X/DAY (BID)
     Route: 048
     Dates: start: 20230518, end: 20241112
  2. BRIVARACETAM [Suspect]
     Active Substance: BRIVARACETAM
     Dosage: 100 MILLIGRAM, 2X/DAY (BID)
  3. VIMPAT [Suspect]
     Active Substance: LACOSAMIDE
     Indication: Epilepsy
     Dosage: 100 MILLIGRAM, 2X/DAY (BID)
     Route: 048
     Dates: start: 20231117, end: 20250103
  4. VIMPAT [Suspect]
     Active Substance: LACOSAMIDE
     Dosage: 100 MILLIGRAM, 2X/DAY (BID)
     Dates: start: 20250131

REACTIONS (4)
  - Seizure [Recovered/Resolved]
  - Insomnia [Unknown]
  - Product dispensing issue [Unknown]
  - Therapy interrupted [Unknown]

NARRATIVE: CASE EVENT DATE: 20241113
